FAERS Safety Report 6494872-7 (Version None)
Quarter: 2009Q4

REPORT INFORMATION
  Report Type: 
  Country: None (occurrence: None)
  Receive Date: 20091214
  Receipt Date: 20091211
  Transmission Date: 20100525
  Serious: Yes (Life-Threatening, Other)
  Sender: FDA-Public Use
  Company Number: PHHY2009GB42412

PATIENT
  Sex: Male

DRUGS (4)
  1. CLOZARIL [Suspect]
     Indication: SCHIZOPHRENIA
     Dosage: UNK
     Dates: start: 20070703
  2. CLOZARIL [Suspect]
     Dosage: UNK
     Dates: start: 20090910
  3. DIAZEPAM [Concomitant]
  4. HEROIN [Concomitant]
     Dosage: UNK
     Dates: start: 20091001

REACTIONS (7)
  - ATRIAL SEPTAL DEFECT [None]
  - CEREBROVASCULAR ACCIDENT [None]
  - HYPERHIDROSIS [None]
  - HYPOTENSION [None]
  - OVERDOSE [None]
  - PALLOR [None]
  - TACHYCARDIA [None]
